FAERS Safety Report 7674227-X (Version None)
Quarter: 2011Q3

REPORT INFORMATION
  Report Type: 
  Country: None (occurrence: None)
  Receive Date: 20110810
  Receipt Date: 20110728
  Transmission Date: 20111222
  Serious: Yes (Other)
  Sender: FDA-Public Use
  Company Number: US-ELI_LILLY_AND_COMPANY-US201107008021

PATIENT
  Sex: Male

DRUGS (3)
  1. LANTUS [Concomitant]
     Dosage: UNK
  2. HUMALOG [Suspect]
     Dosage: UNK, PRN
     Dates: start: 20110301
  3. HUMALOG [Suspect]
     Indication: DIABETES MELLITUS
     Dosage: UNK, PRN
     Dates: start: 20110301

REACTIONS (5)
  - INCORRECT DOSE ADMINISTERED [None]
  - CONVULSION [None]
  - INCOHERENT [None]
  - FALL [None]
  - ACCIDENTAL OVERDOSE [None]
